FAERS Safety Report 7467273-2 (Version None)
Quarter: 2011Q2

REPORT INFORMATION
  Report Type: 
  Country: None (occurrence: None)
  Receive Date: 20110509
  Receipt Date: 20101119
  Transmission Date: 20111010
  Serious: No
  Sender: FDA-Public Use
  Company Number: US-ALEXION-A201001508

PATIENT
  Sex: Female

DRUGS (6)
  1. SOLIRIS [Suspect]
     Indication: PAROXYSMAL NOCTURNAL HAEMOGLOBINURIA
     Dosage: UNK
     Route: 042
     Dates: start: 20080401
  2. SOLIRIS [Suspect]
     Dosage: 900 MG, UNK
  3. AGGRENOX [Concomitant]
     Dosage: UNK
     Dates: end: 20101115
  4. COUMADIN [Suspect]
     Indication: PORTAL VEIN THROMBOSIS
     Dosage: UNK
  5. PRADAXA [Concomitant]
     Indication: PORTAL VEIN THROMBOSIS
     Dosage: UNK
     Dates: start: 20101115
  6. ASPIRIN [Concomitant]
     Dosage: UNK

REACTIONS (1)
  - DRUG LEVEL FLUCTUATING [None]
